FAERS Safety Report 16807926 (Version 1)
Quarter: 2019Q3

REPORT INFORMATION
  Report Type: Report from Study
  Country: US (occurrence: US)
  Receive Date: 20190915
  Receipt Date: 20190915
  Transmission Date: 20191005
  Serious: Yes (Hospitalization)
  Sender: FDA-Public Use
  Company Number: US-GILEAD-2019-0428281

PATIENT
  Age: 54 Year
  Sex: Male

DRUGS (16)
  1. BASAGLAR [Concomitant]
     Active Substance: INSULIN GLARGINE
  2. MAGNESIUM OXIDE. [Concomitant]
     Active Substance: MAGNESIUM OXIDE
  3. POTASSIUM CHLORIDE. [Concomitant]
     Active Substance: POTASSIUM CHLORIDE
  4. CLONIDINE. [Concomitant]
     Active Substance: CLONIDINE
  5. CARVEDILOL. [Concomitant]
     Active Substance: CARVEDILOL
  6. MAG OXIDE [Concomitant]
     Active Substance: MAGNESIUM OXIDE
  7. SYMBICORT [Concomitant]
     Active Substance: BUDESONIDE\FORMOTEROL FUMARATE DIHYDRATE
  8. AMBRISENTAN [Suspect]
     Active Substance: AMBRISENTAN
     Indication: PULMONARY ARTERIAL HYPERTENSION
     Dosage: 5 MG, QD
     Route: 065
     Dates: start: 20190614
  9. AMLODIPINE [Concomitant]
     Active Substance: AMLODIPINE BESYLATE
  10. FUROSEMIDE. [Concomitant]
     Active Substance: FUROSEMIDE
  11. METFORMIN [Concomitant]
     Active Substance: METFORMIN HYDROCHLORIDE
  12. SPIRONOLACTON [Concomitant]
     Active Substance: SPIRONOLACTONE
  13. VALSARTAN. [Concomitant]
     Active Substance: VALSARTAN
  14. ATORVASTATIN [Concomitant]
     Active Substance: ATORVASTATIN
  15. OMEPRAZOLE. [Concomitant]
     Active Substance: OMEPRAZOLE
  16. ALBUTEROL [SALBUTAMOL SULFATE] [Concomitant]
     Active Substance: ALBUTEROL SULFATE

REACTIONS (1)
  - Dyspnoea [Not Recovered/Not Resolved]

NARRATIVE: CASE EVENT DATE: 201908
